FAERS Safety Report 17441693 (Version 1)
Quarter: 2020Q1

REPORT INFORMATION
  Report Type: Spontaneous
  Country: LB (occurrence: LB)
  Receive Date: 20200220
  Receipt Date: 20200220
  Transmission Date: 20200409
  Serious: Yes (Other)
  Sender: FDA-Public Use
  Company Number: LB-PFIZER INC-2020073716

PATIENT
  Age: 60 Year
  Sex: Female

DRUGS (1)
  1. SUTENT [Suspect]
     Active Substance: SUNITINIB MALATE
     Dosage: 50 MG, ALTERNATE DAY (OD)
     Route: 048
     Dates: start: 201907, end: 202002

REACTIONS (4)
  - Off label use [Unknown]
  - Neoplasm progression [Unknown]
  - Insomnia [Recovered/Resolved]
  - Tuberculosis [Unknown]
